FAERS Safety Report 12654143 (Version 1)
Quarter: 2016Q3

REPORT INFORMATION
  Report Type: Spontaneous
  Country: US (occurrence: None)
  Receive Date: 20160815
  Receipt Date: 20160815
  Transmission Date: 20161109
  Serious: No
  Sender: FDA-Public Use
  Company Number: None

PATIENT
  Age: 64 Year
  Sex: Female
  Weight: 72.58 kg

DRUGS (1)
  1. FARXIGA [Suspect]
     Active Substance: DAPAGLIFLOZIN PROPANEDIOL
     Indication: TYPE 2 DIABETES MELLITUS
     Dosage: IN THE MORNING TAKEN BY MOUTH
     Route: 048
     Dates: start: 20160804, end: 20160808

REACTIONS (2)
  - Fungal infection [None]
  - Feeling abnormal [None]

NARRATIVE: CASE EVENT DATE: 20160808
